FAERS Safety Report 12936517 (Version 3)
Quarter: 2017Q1

REPORT INFORMATION
  Report Type: Spontaneous
  Country: US (occurrence: US)
  Receive Date: 20161114
  Receipt Date: 20170317
  Transmission Date: 20170428
  Serious: Yes (Other)
  Sender: FDA-Public Use
  Company Number: GXBR2016US003387

PATIENT
  Sex: Male

DRUGS (1)
  1. GLATOPA [Suspect]
     Active Substance: GLATIRAMER ACETATE
     Indication: MULTIPLE SCLEROSIS
     Dosage: UNK DF, UNK
     Route: 065

REACTIONS (5)
  - Diplegia [Recovering/Resolving]
  - Demyelination [Unknown]
  - Bedridden [Recovering/Resolving]
  - Drug ineffective [Not Recovered/Not Resolved]
  - Multiple sclerosis relapse [Recovering/Resolving]
